APPROVED DRUG PRODUCT: LINCOMYCIN HYDROCHLORIDE
Active Ingredient: LINCOMYCIN HYDROCHLORIDE
Strength: EQ 300MG BASE/ML
Dosage Form/Route: INJECTABLE;INJECTION
Application: A201746 | Product #001 | TE Code: AP
Applicant: XGEN PHARMACEUTICALS DJB INC
Approved: Jun 4, 2015 | RLD: No | RS: No | Type: RX